FAERS Safety Report 15139803 (Version 2)
Quarter: 2018Q3

REPORT INFORMATION
  Report Type: Spontaneous
  Country: US (occurrence: US)
  Receive Date: 20180713
  Receipt Date: 20180823
  Transmission Date: 20181010
  Serious: No
  Sender: FDA-Public Use
  Company Number: US-SA-2018SA181707

PATIENT
  Age: 81 Year
  Sex: Female

DRUGS (17)
  1. METOPROLOL [METOPROLOL TARTRATE] [Concomitant]
  2. POTASSIUM CHLORIDE. [Concomitant]
     Active Substance: POTASSIUM CHLORIDE
  3. VOLTAREN [DICLOFENAC] [Concomitant]
     Active Substance: DICLOFENAC SODIUM
  4. LIDOCAINE. [Concomitant]
     Active Substance: LIDOCAINE
     Dosage: 2.5%
  5. AZELASTINE. [Concomitant]
     Active Substance: AZELASTINE HYDROCHLORIDE
  6. MEMANTINE HYDROCHLORIDE. [Concomitant]
     Active Substance: MEMANTINE HYDROCHLORIDE
  7. PANTOPRAZOLE [Concomitant]
     Active Substance: PANTOPRAZOLE
  8. AMOXICILLIN. [Concomitant]
     Active Substance: AMOXICILLIN
     Dosage: 500 MG
  9. PANTOPRAZOLE [Concomitant]
     Active Substance: PANTOPRAZOLE
     Dosage: UNK
  10. LISINOPRIL. [Concomitant]
     Active Substance: LISINOPRIL
  11. HYOSCYAMINE. [Concomitant]
     Active Substance: HYOSCYAMINE
     Dosage: SUB 0.125 MG
  12. SERTRALINE HYDROCHLORIDE. [Concomitant]
     Active Substance: SERTRALINE HYDROCHLORIDE
  13. PRALUENT [Suspect]
     Active Substance: ALIROCUMAB
     Dosage: 75 MG, QOW
     Route: 058
     Dates: start: 201707
  14. PRALUENT [Suspect]
     Active Substance: ALIROCUMAB
     Dosage: 75 MG, QOW
     Route: 058
     Dates: start: 201707
  15. CARVEDILOL. [Concomitant]
     Active Substance: CARVEDILOL
     Dosage: 3.125 MG
  16. CLOPIDOGREL [Concomitant]
     Active Substance: CLOPIDOGREL BISULFATE
  17. FLUTICASONE. [Concomitant]
     Active Substance: FLUTICASONE
     Dosage: SUS 50MCG/AC

REACTIONS (1)
  - Sinusitis [Not Recovered/Not Resolved]
